FAERS Safety Report 11783323 (Version 2)
Quarter: 2015Q4

REPORT INFORMATION
  Report Type: Report from Study
  Country: BR (occurrence: BR)
  Receive Date: 20151127
  Receipt Date: 20151229
  Transmission Date: 20160305
  Serious: Yes (Death, Hospitalization)
  Sender: FDA-Public Use
  Company Number: PHHY2015BR154755

PATIENT
  Sex: Male
  Weight: 80 kg

DRUGS (2)
  1. ONBREZ BREEZHALER [Suspect]
     Active Substance: INDACATEROL
     Indication: LUNG DISORDER
     Dosage: 300 UG, QD
     Route: 065
  2. FORASEQ [Suspect]
     Active Substance: BUDESONIDE\FORMOTEROL FUMARATE
     Indication: CHRONIC OBSTRUCTIVE PULMONARY DISEASE
     Dosage: 4 DF (FORMOTEROL FUMARATE12 UG AND BUDESONIDE 400 UG), QD ((2 OF EACH TREATMENT)
     Route: 055

REACTIONS (4)
  - Product use issue [Unknown]
  - Respiratory tract infection [Fatal]
  - Acute kidney injury [Fatal]
  - Cardiac arrest [Fatal]
